FAERS Safety Report 7585293-4 (Version None)
Quarter: 2011Q2

REPORT INFORMATION
  Report Type: 
  Country: None (occurrence: None)
  Receive Date: 20110629
  Receipt Date: 20110629
  Transmission Date: 20111010
  Serious: Yes (Other)
  Sender: FDA-Public Use
  Company Number: None

PATIENT
  Age: 54 Year
  Sex: Female
  Weight: 71.2147 kg

DRUGS (3)
  1. PRADAXA [Suspect]
     Indication: PROPHYLAXIS
     Dosage: 150 MG TWICE DAILY PO
     Route: 048
     Dates: start: 20110608, end: 20110628
  2. PRADAXA [Suspect]
     Indication: ATRIAL FIBRILLATION
     Dosage: 150 MG TWICE DAILY PO
     Route: 048
     Dates: start: 20110608, end: 20110628
  3. PRADAXA [Suspect]
     Indication: CEREBROVASCULAR ACCIDENT
     Dosage: 150 MG TWICE DAILY PO
     Route: 048
     Dates: start: 20110608, end: 20110628

REACTIONS (3)
  - THROAT IRRITATION [None]
  - ABDOMINAL DISCOMFORT [None]
  - SKIN DISORDER [None]
